FAERS Safety Report 5248157-7 (Version None)
Quarter: 2007Q1

REPORT INFORMATION
  Report Type: 
  Country: None (occurrence: None)
  Receive Date: 20070222
  Receipt Date: 20070214
  Transmission Date: 20070707
  Serious: Yes (Hospitalization)
  Sender: FDA-Public Use
  Company Number: 2007-00817

PATIENT
  Age: 10 Year
  Sex: Male

DRUGS (4)
  1. DICLOFENAC (WATSON LABORATORIES) [Suspect]
     Indication: BACK PAIN
     Dosage: 12.5 MG, DAILY
  2. DICLOFENAC (WATSON LABORATORIES) [Suspect]
     Indication: INJURY
     Dosage: 12.5 MG, DAILY
  3. MEFENAMIC ACID [Suspect]
     Indication: BACK PAIN
     Dosage: 260 MG, DAILY
  4. MEFENAMIC ACID [Suspect]
     Indication: INJURY
     Dosage: 260 MG, DAILY

REACTIONS (2)
  - NEPHRITIS INTERSTITIAL [None]
  - REVERSIBLE POSTERIOR LEUKOENCEPHALOPATHY SYNDROME [None]
